FAERS Safety Report 19867814 (Version 1)
Quarter: 2021Q3

REPORT INFORMATION
  Report Type: Spontaneous
  Country: US (occurrence: US)
  Receive Date: 20210922
  Receipt Date: 20210922
  Transmission Date: 20211014
  Serious: Yes (Other)
  Sender: FDA-Public Use
  Company Number: US-BRISTOL-MYERS SQUIBB COMPANY-BMS-2021-093588

PATIENT
  Age: 7 Year
  Sex: Female
  Weight: 19.25 kg

DRUGS (4)
  1. ORENCIA [Suspect]
     Active Substance: ABATACEPT
     Indication: JUVENILE IDIOPATHIC ARTHRITIS
     Dosage: 50 MG/0.4 ML, QWK
     Route: 058
     Dates: start: 20200115
  2. ORENCIA [Suspect]
     Active Substance: ABATACEPT
     Dosage: 87.5 MG/0.7 ML INJECT 0.7 ML UNDER THE SKIN WEEKLY FOR 30 DAYS
     Route: 058
  3. ORENCIA [Suspect]
     Active Substance: ABATACEPT
     Indication: JUVENILE IDIOPATHIC ARTHRITIS
     Dosage: 50 MG/0.4 ML, QWK
     Route: 058
     Dates: start: 20200115
  4. ORENCIA [Suspect]
     Active Substance: ABATACEPT
     Dosage: 87.5 MG/0.7 ML INJECT 0.7 ML UNDER THE SKIN WEEKLY FOR 30 DAYS
     Route: 058

REACTIONS (1)
  - Juvenile idiopathic arthritis [Unknown]
